FAERS Safety Report 20223925 (Version 5)
Quarter: 2022Q4

REPORT INFORMATION
  Report Type: Spontaneous
  Country: ES (occurrence: ES)
  Receive Date: 20211223
  Receipt Date: 20221208
  Transmission Date: 20230113
  Serious: Yes (Other)
  Sender: FDA-Public Use
  Company Number: ES-ROCHE-2969146

PATIENT
  Age: 57 Year
  Sex: Female
  Weight: 45 kg

DRUGS (9)
  1. TRASTUZUMAB [Suspect]
     Active Substance: TRASTUZUMAB
     Indication: Breast cancer
     Dosage: (14/OCT/2021, SHE RECEIVED MOST RECENT DOSE PRIOR TO EVENT)
     Route: 041
     Dates: start: 20210216, end: 20211104
  2. PERTUZUMAB [Suspect]
     Active Substance: PERTUZUMAB
     Indication: Breast cancer
     Dosage: (14/OCT/2021, SHE RECEIVED MOST RECENT DOSE PRIOR TO EVENT)(PHARMACEUTICAL FORM :INFUSION, SOLUTION)
     Route: 042
     Dates: start: 20210216, end: 20211104
  3. ANASTROZOLE [Concomitant]
     Active Substance: ANASTROZOLE
     Indication: Breast cancer
     Dosage: UNK
     Dates: start: 20210723
  4. ATEZOLIZUMAB [Concomitant]
     Active Substance: ATEZOLIZUMAB
     Indication: Breast cancer
     Dosage: 1200 MG, LAST DOSE BEFORE SERIOUS ADVERSE EVENT: 02SEP2021
     Route: 041
     Dates: start: 20210216, end: 20211014
  5. DOMPERIDONE [Concomitant]
     Active Substance: DOMPERIDONE
     Indication: Nausea
     Dosage: UNK
     Dates: start: 20210309, end: 20211125
  6. CARVEDILOL [Concomitant]
     Active Substance: CARVEDILOL
     Indication: Cardiac failure
     Dosage: 6.25 MG, HALF TABLET AT MORNING AND ANOTHER HALF BY NIGHT
     Dates: start: 20220407
  7. HYDROXYZINE [Concomitant]
     Active Substance: HYDROXYZINE HYDROCHLORIDE
     Indication: Anxiety
     Dosage: UNK
     Dates: start: 20210309, end: 20211125
  8. ALPRAZOLAM [Concomitant]
     Active Substance: ALPRAZOLAM
     Indication: Anxiety
     Dosage: UNK
     Dates: start: 20210215, end: 20211125
  9. OMEPRAZOLE [Concomitant]
     Active Substance: OMEPRAZOLE
     Dosage: UNK
     Dates: start: 20210215, end: 20211125

REACTIONS (1)
  - Cardiotoxicity [Recovered/Resolved]

NARRATIVE: CASE EVENT DATE: 20211020
